FAERS Safety Report 10015677 (Version 1)
Quarter: 2014Q1

REPORT INFORMATION
  Report Type: Spontaneous
  Country: US (occurrence: US)
  Receive Date: 20140317
  Receipt Date: 20140317
  Transmission Date: 20141002
  Serious: No
  Sender: FDA-Public Use
  Company Number: US-PFIZER INC-2014072148

PATIENT
  Age: 49 Year
  Sex: Female
  Weight: 58.96 kg

DRUGS (1)
  1. ADVIL [Suspect]
     Indication: HEADACHE
     Dosage: UNK, AS NEEDED
     Dates: start: 20140216

REACTIONS (4)
  - Hypersensitivity [Recovered/Resolved]
  - Rash [Recovered/Resolved]
  - Swelling [Recovered/Resolved]
  - Product quality issue [Recovered/Resolved]
